FAERS Safety Report 6886768-3 (Version None)
Quarter: 2010Q3

REPORT INFORMATION
  Report Type: 
  Country: None (occurrence: None)
  Receive Date: 20100730
  Receipt Date: 20100721
  Transmission Date: 20110219
  Serious: Yes (Other)
  Sender: FDA-Public Use
  Company Number: JP-PFIZER INC-2010079152

PATIENT
  Age: 32 Year
  Sex: Male

DRUGS (1)
  1. SALAZOPYRIN [Suspect]
     Indication: COLITIS ULCERATIVE
     Dosage: 6000 MG, 1X/DAY
     Route: 048
     Dates: end: 20100622

REACTIONS (1)
  - CALCULUS URINARY [None]
